FAERS Safety Report 20992167 (Version 1)
Quarter: 2022Q2

REPORT INFORMATION
  Report Type: Spontaneous
  Country: HU (occurrence: HU)
  Receive Date: 20220622
  Receipt Date: 20220622
  Transmission Date: 20220721
  Serious: Yes (Hospitalization, Other)
  Sender: FDA-Public Use
  Company Number: HU-002147023-NVSC2022HU139064

PATIENT

DRUGS (6)
  1. RUXOLITINIB [Suspect]
     Active Substance: RUXOLITINIB
     Indication: Myelofibrosis
     Dosage: 20 MG, BID(2X)
     Route: 065
     Dates: start: 201908, end: 2021
  2. CYTARABINE [Suspect]
     Active Substance: CYTARABINE
     Indication: Acute myeloid leukaemia
     Dosage: UNK (HIGH DOSE)
     Route: 065
     Dates: start: 199907
  3. MITOXANTRONE [Concomitant]
     Active Substance: MITOXANTRONE HYDROCHLORIDE
     Indication: Acute myeloid leukaemia
     Dosage: UNK
     Route: 065
     Dates: start: 199907
  4. CYTARABINE [Concomitant]
     Active Substance: CYTARABINE
     Indication: Product used for unknown indication
     Dosage: UNK (HIGH DOSE) (4X)
     Route: 065
  5. ASPIRIN [Concomitant]
     Active Substance: ASPIRIN
     Indication: Product used for unknown indication
     Dosage: 100 MG, QD
     Route: 065
     Dates: start: 201107
  6. HYDROXYUREA [Concomitant]
     Active Substance: HYDROXYUREA
     Indication: Product used for unknown indication
     Dosage: 500 MG, QD
     Route: 065
     Dates: start: 201107

REACTIONS (19)
  - Back pain [Unknown]
  - Bone cancer [Unknown]
  - Pneumonia [Unknown]
  - Pulmonary mass [Not Recovered/Not Resolved]
  - Lung disorder [Recovering/Resolving]
  - Cough [Unknown]
  - Cytopenia [Recovered/Resolved]
  - Dyspnoea [Unknown]
  - Pyrexia [Unknown]
  - Pulmonary congestion [Recovering/Resolving]
  - Haemoglobin decreased [Recovering/Resolving]
  - Blood lactate dehydrogenase increased [Unknown]
  - Dysarthria [Recovering/Resolving]
  - Hemianopia homonymous [Recovering/Resolving]
  - Paresis [Recovering/Resolving]
  - Lung neoplasm malignant [Unknown]
  - Second primary malignancy [Unknown]
  - Platelet count increased [Recovering/Resolving]
  - White blood cell count increased [Unknown]

NARRATIVE: CASE EVENT DATE: 20210101
